FAERS Safety Report 14365563 (Version 7)
Quarter: 2019Q1

REPORT INFORMATION
  Report Type: Report from Study
  Country: CA (occurrence: CA)
  Receive Date: 20180109
  Receipt Date: 20190218
  Transmission Date: 20190417
  Serious: Yes (Hospitalization, Other)
  Sender: FDA-Public Use
  Company Number: CA-BRISTOL-MYERS SQUIBB COMPANY-BMS-2017-119806

PATIENT
  Age: 85 Year
  Sex: Male

DRUGS (1)
  1. ABATACEPT [Suspect]
     Active Substance: ABATACEPT
     Indication: RHEUMATOID ARTHRITIS
     Dosage: 750 MG, Q4WK
     Route: 042
     Dates: start: 20130819

REACTIONS (10)
  - Cardiac failure [Not Recovered/Not Resolved]
  - Asthenia [Recovering/Resolving]
  - Dehydration [Unknown]
  - Pulmonary oedema [Unknown]
  - Influenza [Unknown]
  - Pneumonia [Unknown]
  - Skin disorder [Unknown]
  - Nasopharyngitis [Unknown]
  - Gastroenteritis [Unknown]
  - Cough [Unknown]

NARRATIVE: CASE EVENT DATE: 201712
